FAERS Safety Report 7335507-0 (Version None)
Quarter: 2011Q1

REPORT INFORMATION
  Report Type: 
  Country: None (occurrence: None)
  Receive Date: 20110307
  Receipt Date: 20110222
  Transmission Date: 20110831
  Serious: Yes (Death)
  Sender: FDA-Public Use
  Company Number: AU-CELGENEUS-008-C5013-10123217

PATIENT
  Sex: Male
  Weight: 62 kg

DRUGS (13)
  1. IRBESARTAN [Concomitant]
     Indication: HYPERTENSION
     Dosage: 300 MILLIGRAM
     Route: 048
     Dates: start: 20060406
  2. MOVIPREP [Concomitant]
     Indication: CONSTIPATION
     Dosage: 4 DOSAGE FORMS
     Route: 048
     Dates: start: 20101120
  3. CLEXANE [Concomitant]
     Indication: THROMBOSIS PROPHYLAXIS
     Dosage: 40 MILLIGRAM
     Route: 058
     Dates: start: 20101114
  4. PREDNISONE [Suspect]
     Indication: MULTIPLE MYELOMA
     Dosage: 135 MILLIGRAM
     Route: 065
     Dates: start: 20101119, end: 20101122
  5. MELPHALAN [Suspect]
     Indication: MULTIPLE MYELOMA
     Dosage: 8 MILLIGRAM
     Route: 065
     Dates: start: 20101119, end: 20101122
  6. ASPIRIN [Concomitant]
     Indication: THROMBOSIS PROPHYLAXIS
     Dosage: 100 MILLIGRAM
     Route: 048
     Dates: start: 20101119
  7. ZOMETA [Concomitant]
     Indication: BONE DISORDER
     Dosage: .1333 MILLIGRAM
     Route: 051
     Dates: start: 20101213
  8. PARACETAMOL [Concomitant]
     Dosage: 8 GRAM
     Route: 048
     Dates: start: 20101108
  9. ALLOPURINOL [Concomitant]
     Dosage: 300 MILLIGRAM
     Route: 048
     Dates: start: 20101108
  10. THALIDOMIDE [Suspect]
     Indication: MULTIPLE MYELOMA
     Dosage: 200 MILLIGRAM
     Route: 048
     Dates: start: 20101119
  11. DURAGESIC-100 [Concomitant]
     Dosage: 4 MICROGRAM
     Route: 062
     Dates: start: 20101117
  12. COLOXYL WITH SENNA [Concomitant]
     Indication: CONSTIPATION
     Dosage: 4 TABLET
     Route: 048
     Dates: start: 20101120
  13. RANITIDINE [Concomitant]
     Dosage: 300 MILLIGRAM
     Route: 048
     Dates: start: 19990501

REACTIONS (1)
  - SUDDEN DEATH [None]
